FAERS Safety Report 15320408 (Version 1)
Quarter: 2018Q3

REPORT INFORMATION
  Report Type: Spontaneous
  Country: ZA (occurrence: ZA)
  Receive Date: 20180827
  Receipt Date: 20180827
  Transmission Date: 20181010
  Serious: Yes (Hospitalization)
  Sender: FDA-Public Use
  Company Number: ZA-PFIZER INC-2018316446

PATIENT
  Age: 54 Year
  Sex: Female

DRUGS (8)
  1. ARIPIPRAZOLE. [Suspect]
     Active Substance: ARIPIPRAZOLE
     Dosage: 5 MG, UNK
  2. TOPALEX [Suspect]
     Active Substance: TOPIRAMATE
     Dosage: 100 MG, UNK
  3. TREPILINE [Suspect]
     Active Substance: AMITRIPTYLINE
     Dosage: 25 MG, UNK
  4. SERTRA [Suspect]
     Active Substance: SERTRALINE HYDROCHLORIDE
     Indication: DEPRESSION
     Dosage: 50 MG, 2X/DAY
     Dates: start: 2017
  5. ASPEN TRAZODONE [Suspect]
     Active Substance: TRAZODONE HYDROCHLORIDE
     Dosage: 100 MG, UNK
  6. DORMONOCT [Suspect]
     Active Substance: LOPRAZOLAM
     Dosage: 2 MG, UNK
  7. EPITEC [Suspect]
     Active Substance: LAMOTRIGINE
     Dosage: 200 MG, UNK
  8. URBANOL [Suspect]
     Active Substance: CLOBAZAM
     Dosage: 10 MG, UNK

REACTIONS (3)
  - Depression [Recovering/Resolving]
  - Disease recurrence [Recovering/Resolving]
  - Hypotension [Unknown]
